FAERS Safety Report 19238763 (Version 1)
Quarter: 2021Q2

REPORT INFORMATION
  Report Type: Spontaneous
  Country: FR (occurrence: FR)
  Receive Date: 20210510
  Receipt Date: 20210510
  Transmission Date: 20210717
  Serious: Yes (Other)
  Sender: FDA-Public Use
  Company Number: FR-AUROBINDO-AUR-APL-2021-018696

PATIENT
  Age: 71 Year
  Sex: Female

DRUGS (10)
  1. CEFTRIAXONE. [Concomitant]
     Active Substance: CEFTRIAXONE
     Indication: DRUG PROVOCATION TEST
     Dosage: UNK (UNK)
     Route: 065
  2. ERTAPENEM SODIUM [Concomitant]
     Active Substance: ERTAPENEM SODIUM
     Indication: SKIN TEST
     Dosage: UNK (UNK, AT A 20 MG/ML CONCENTRATION)
     Route: 065
  3. CLEMIZOLE PENICILLIN [Suspect]
     Active Substance: CLEMIZOLE PENICILLIN
     Indication: SKIN TEST
     Dosage: UNK (UNK)
     Route: 065
  4. MEROPENEM. [Concomitant]
     Active Substance: MEROPENEM
     Indication: SKIN TEST
     Dosage: UNK
     Route: 065
  5. AMOXICILLIN. [Suspect]
     Active Substance: AMOXICILLIN
     Indication: SKIN TEST
     Dosage: UNK (UNK)
     Route: 065
  6. CILASTATIN SODIUM;IMIPENEM [Suspect]
     Active Substance: CILASTATIN SODIUM\IMIPENEM
     Indication: DRUG PROVOCATION TEST
     Dosage: UNK
     Route: 065
  7. CILASTATIN SODIUM;IMIPENEM [Suspect]
     Active Substance: CILASTATIN SODIUM\IMIPENEM
     Indication: SKIN TEST
     Dosage: UNK (UNK)
     Route: 065
  8. PIPERACILLIN SODIUM;TAZOBACTAM SODIUM [Suspect]
     Active Substance: PIPERACILLIN SODIUM\TAZOBACTAM SODIUM
     Indication: SKIN TEST
     Dosage: UNK
     Route: 065
  9. PHENOXYMETHYLPENICILLIN [Suspect]
     Active Substance: PENICILLIN V
     Indication: SKIN TEST
     Dosage: UNK
     Route: 065
  10. CEFPODOXIME PROXETIL. [Concomitant]
     Active Substance: CEFPODOXIME PROXETIL
     Indication: DRUG PROVOCATION TEST
     Dosage: UNK (UNK)
     Route: 065

REACTIONS (3)
  - Cross sensitivity reaction [Unknown]
  - Rash maculo-papular [Unknown]
  - Eosinophilia [Unknown]
